FAERS Safety Report 24206161 (Version 1)
Quarter: 2024Q3

REPORT INFORMATION
  Report Type: Spontaneous
  Country: US (occurrence: US)
  Receive Date: 20240813
  Receipt Date: 20240813
  Transmission Date: 20241016
  Serious: No
  Sender: PFIZER
  Company Number: US-PFIZER INC-202400233523

PATIENT
  Age: 48 Year
  Sex: Female
  Weight: 98.866 kg

DRUGS (4)
  1. PAXLOVID [Suspect]
     Active Substance: NIRMATRELVIR\RITONAVIR
     Indication: COVID-19 treatment
     Dosage: [NIRMATRELVIR 300 MG]/[RITONAVIR 100 MG]; 2X/DAY
     Dates: start: 20240807
  2. PREDNISONE [Concomitant]
     Active Substance: PREDNISONE
     Indication: COVID-19 treatment
     Dosage: 20 MG, 1X/DAY (2 TABLETS INT HE MORNING)
     Dates: start: 20240807
  3. TESSALON [Concomitant]
     Active Substance: BENZONATATE
     Indication: COVID-19 treatment
     Dosage: 200 MG
     Dates: start: 20240807
  4. IPRATROPIUM BROMIDE [Concomitant]
     Active Substance: IPRATROPIUM BROMIDE\IPRATROPIUM BROMIDE ANHYDROUS
     Indication: COVID-19 treatment
     Route: 045

REACTIONS (8)
  - Lacrimation increased [Unknown]
  - Pharyngeal swelling [Unknown]
  - Rash [Unknown]
  - Eye pruritus [Unknown]
  - Swelling [Unknown]
  - Pruritus [Unknown]
  - Oropharyngeal pain [Unknown]
  - Pharyngeal mass [Unknown]

NARRATIVE: CASE EVENT DATE: 20240807
